FAERS Safety Report 6380990-0 (Version None)
Quarter: 2009Q3

REPORT INFORMATION
  Report Type: 
  Country: None (occurrence: None)
  Receive Date: 20090925
  Receipt Date: 20090925
  Transmission Date: 20100115
  Serious: Yes (Hospitalization)
  Sender: FDA-Public Use
  Company Number: None

PATIENT
  Sex: Female
  Weight: 62.5964 kg

DRUGS (2)
  1. REMICADE [Suspect]
     Indication: RHEUMATOID ARTHRITIS
  2. IMITREX [Suspect]
     Indication: MIGRAINE

REACTIONS (6)
  - BLINDNESS CORTICAL [None]
  - CONVULSION [None]
  - HEADACHE [None]
  - NAUSEA [None]
  - RETCHING [None]
  - REVERSIBLE POSTERIOR LEUKOENCEPHALOPATHY SYNDROME [None]
